FAERS Safety Report 4668273-8 (Version None)
Quarter: 2005Q2

REPORT INFORMATION
  Report Type: 
  Country: None (occurrence: None)
  Receive Date: 20050523
  Receipt Date: 20040922
  Transmission Date: 20051028
  Serious: Yes (Other)
  Sender: FDA-Public Use
  Company Number: PHEH2004US10219

PATIENT
  Age: 71 Year
  Sex: Female

DRUGS (4)
  1. AREDIA [Suspect]
     Indication: BREAST CANCER METASTATIC
     Dosage: 90 MG Q 4 WEEKS
     Dates: start: 20040121, end: 20040609
  2. ZOMETA [Suspect]
     Indication: BREAST CANCER METASTATIC
     Dosage: 4 MG Q 4 WEEKS
     Dates: start: 20030122, end: 20031223
  3. ARIMIDEX [Concomitant]
  4. DIOVAN [Concomitant]
     Indication: HYPERTENSION

REACTIONS (6)
  - BONE DEBRIDEMENT [None]
  - IMPAIRED HEALING [None]
  - JAW DISORDER [None]
  - OSTEONECROSIS [None]
  - SOFT TISSUE DISORDER [None]
  - TOOTH EXTRACTION [None]
